FAERS Safety Report 6248701-7 (Version None)
Quarter: 2009Q2

REPORT INFORMATION
  Report Type: 
  Country: None (occurrence: None)
  Receive Date: 20090629
  Receipt Date: 20090420
  Transmission Date: 20091009
  Serious: No
  Sender: FDA-Public Use
  Company Number: US-TYCO HEALTHCARE/MALLINCKRODT-T200900902

PATIENT
  Sex: Male
  Weight: 86 kg

DRUGS (5)
  1. HYDROMORPHONE [Suspect]
     Indication: ABDOMINAL DISCOMFORT
     Dosage: 2 MG, TID
     Dates: start: 20070401
  2. HYDROMORPHONE [Suspect]
     Dosage: 4 MG, TID
  3. DILAUDID [Suspect]
     Indication: MALAISE
     Dosage: 2 MG, TID
  4. DILAUDID [Suspect]
     Indication: ABDOMINAL DISCOMFORT
  5. FENTANYL-100 [Concomitant]
     Dosage: 25 UG (MCG), HR, TD

REACTIONS (6)
  - ARTHRALGIA [None]
  - CARPAL TUNNEL SYNDROME [None]
  - DRUG INEFFECTIVE [None]
  - MUSCULOSKELETAL PAIN [None]
  - NECK PAIN [None]
  - THERAPEUTIC RESPONSE UNEXPECTED [None]
